FAERS Safety Report 6902640-4 (Version None)
Quarter: 2010Q3

REPORT INFORMATION
  Report Type: 
  Country: None (occurrence: None)
  Receive Date: 20100803
  Receipt Date: 20080813
  Transmission Date: 20110219
  Serious: No
  Sender: FDA-Public Use
  Company Number: US-PFIZER INC-2008067830

PATIENT
  Sex: Female
  Weight: 59.09 kg

DRUGS (10)
  1. LYRICA [Suspect]
     Indication: FIBROMYALGIA
     Dates: start: 20080701
  2. BUPROPION HYDROCHLORIDE [Concomitant]
  3. PRILOSEC [Concomitant]
  4. LEVOXYL [Concomitant]
  5. VALTREX [Concomitant]
  6. NORTRIPTYLINE [Concomitant]
  7. DIAZEPAM [Concomitant]
  8. RELPAX [Concomitant]
  9. CYCLOBENZAPRINE [Concomitant]
     Dates: start: 20080701
  10. PREDNISONE [Concomitant]

REACTIONS (2)
  - GAIT DISTURBANCE [None]
  - LOSS OF CONTROL OF LEGS [None]
